FAERS Safety Report 5816135-2 (Version None)
Quarter: 2008Q3

REPORT INFORMATION
  Report Type: 
  Country: None (occurrence: None)
  Receive Date: 20080721
  Receipt Date: 20080711
  Transmission Date: 20090109
  Serious: Yes (Other)
  Sender: FDA-Public Use
  Company Number: AU-ABBOTT-08P-008-0462294-00

PATIENT
  Sex: Male

DRUGS (1)
  1. LUCRIN DEPOT 22.5 MG [Suspect]
     Indication: DRUG USE FOR UNKNOWN INDICATION
     Route: 050

REACTIONS (2)
  - DRUG EFFECT DECREASED [None]
  - INCORRECT ROUTE OF DRUG ADMINISTRATION [None]
